FAERS Safety Report 5917044-0 (Version None)
Quarter: 2008Q4

REPORT INFORMATION
  Report Type: 
  Country: None (occurrence: None)
  Receive Date: 20081009
  Receipt Date: 20081009
  Transmission Date: 20090506
  Serious: Yes (Hospitalization, Other)
  Sender: FDA-Public Use
  Company Number: None

PATIENT
  Sex: Female
  Weight: 41.2773 kg

DRUGS (1)
  1. SINGULAIR [Suspect]
     Indication: MULTIPLE ALLERGIES
     Dosage: 30  MONTHLY  PO
     Route: 048
     Dates: start: 20050101, end: 20071111

REACTIONS (4)
  - DEPRESSION [None]
  - INTENTIONAL SELF-INJURY [None]
  - MANIA [None]
  - SUICIDAL IDEATION [None]
